FAERS Safety Report 7237475-9 (Version None)
Quarter: 2011Q1

REPORT INFORMATION
  Report Type: 
  Country: None (occurrence: None)
  Receive Date: 20110112
  Receipt Date: 20101228
  Transmission Date: 20110831
  Serious: Yes (Hospitalization)
  Sender: FDA-Public Use
  Company Number: 2010003600

PATIENT
  Age: 76 Year
  Sex: Male

DRUGS (2)
  1. PERTUZUMAB [Suspect]
     Indication: NON-SMALL CELL LUNG CANCER
     Dosage: Q3W, INTRAVENOUS
     Route: 042
     Dates: start: 20100617
  2. ERLOTINIB HYDROCHLORIDE [Suspect]
     Indication: NON-SMALL CELL LUNG CANCER
     Dosage: QD, ORAL
     Route: 048
     Dates: start: 20100617

REACTIONS (5)
  - DEHYDRATION [None]
  - SECONDARY ADRENOCORTICAL INSUFFICIENCY [None]
  - ASTHENIA [None]
  - PNEUMATOSIS [None]
  - FALL [None]
